FAERS Safety Report 16969988 (Version 2)
Quarter: 2020Q1

REPORT INFORMATION
  Report Type: Report from Study
  Country: GB (occurrence: GB)
  Receive Date: 20191029
  Receipt Date: 20200108
  Transmission Date: 20200409
  Serious: Yes (Hospitalization, Other)
  Sender: FDA-Public Use
  Company Number: GB-BRISTOL-MYERS SQUIBB COMPANY-BMS-2019-023380

PATIENT
  Sex: Female

DRUGS (2)
  1. THYROXIN [Concomitant]
     Active Substance: LEVOTHYROXINE
     Indication: PRODUCT USED FOR UNKNOWN INDICATION
     Route: 065
  2. ABATACEPT [Suspect]
     Active Substance: ABATACEPT
     Indication: RHEUMATOID ARTHRITIS
     Dosage: 125 MILLIGRAM, QWK
     Route: 058
     Dates: start: 20140319

REACTIONS (6)
  - Nodule [Unknown]
  - Pulmonary oedema [Unknown]
  - Labyrinthitis [Unknown]
  - Acute kidney injury [Unknown]
  - Arthropathy [Unknown]
  - Sinusitis [Unknown]
